FAERS Safety Report 8017401-5 (Version None)
Quarter: 2012Q1

REPORT INFORMATION
  Report Type: 
  Country: None (occurrence: None)
  Receive Date: 20120102
  Receipt Date: 20111219
  Transmission Date: 20120608
  Serious: Yes (Other)
  Sender: FDA-Public Use
  Company Number: CA-PFIZER INC-2011279597

PATIENT
  Age: 41 Year
  Sex: Male
  Weight: 94.785 kg

DRUGS (2)
  1. AMIODARONE HCL [Suspect]
     Indication: VENTRICULAR TACHYCARDIA
  2. AMIODARONE HCL [Suspect]
     Indication: VENTRICULAR FIBRILLATION
     Dosage: 200 MG, DAILY

REACTIONS (2)
  - DYSLIPIDAEMIA [None]
  - HYPOTHYROIDISM [None]
